FAERS Safety Report 8807458 (Version 1)
Quarter: 2012Q4

REPORT INFORMATION
  Report Type: Report from Study
  Country: US (occurrence: US)
  Receive Date: 20120925
  Receipt Date: 20120925
  Transmission Date: 20130627
  Serious: Yes (Hospitalization)
  Sender: FDA-Public Use
  Company Number: US-ROCHE-1128934

PATIENT
  Sex: Female
  Weight: 37.23 kg

DRUGS (1)
  1. ZELBORAF [Suspect]
     Indication: METASTATIC MALIGNANT MELANOMA
     Route: 048
     Dates: start: 201110, end: 201206

REACTIONS (2)
  - Neoplasm malignant [Unknown]
  - Drug effect decreased [Unknown]
